FAERS Safety Report 11315306 (Version 1)
Quarter: 2015Q3

REPORT INFORMATION
  Report Type: Spontaneous
  Country: IT (occurrence: IT)
  Receive Date: 20150727
  Receipt Date: 20150727
  Transmission Date: 20151125
  Serious: Yes (Death, Hospitalization, Other)
  Sender: FDA-Public Use
  Company Number: PHHY2015IT086470

PATIENT
  Age: 82 Year
  Sex: Male

DRUGS (1)
  1. ALLOPURINOL. [Suspect]
     Active Substance: ALLOPURINOL
     Indication: HYPERURICAEMIA
     Dosage: 300 MG, QD
     Route: 065

REACTIONS (9)
  - Rash generalised [Unknown]
  - Pyrexia [Unknown]
  - Stevens-Johnson syndrome [Unknown]
  - Malaise [Unknown]
  - Cardiac failure acute [Fatal]
  - Fatigue [Unknown]
  - Lip erosion [Unknown]
  - Gingival erosion [Unknown]
  - Mucosal erosion [Unknown]
